FAERS Safety Report 4442878-1 (Version None)
Quarter: 2004Q3

REPORT INFORMATION
  Report Type: 
  Country: None (occurrence: None)
  Receive Date: 20040907
  Receipt Date: 20040907
  Transmission Date: 20050211
  Serious: No
  Sender: FDA-Public Use
  Company Number: None

PATIENT
  Age: 80 Year
  Sex: Male
  Weight: 76.2043 kg

DRUGS (1)
  1. PROMETHAZINE [Suspect]
     Dosage: 12.5 MG IV TID PRN
     Route: 042
     Dates: start: 20020601, end: 20040301

REACTIONS (2)
  - AGGRESSION [None]
  - CONFUSIONAL STATE [None]
